FAERS Safety Report 9697463 (Version 3)
Quarter: 2014Q2

REPORT INFORMATION
  Report Type: Spontaneous
  Country: JP (occurrence: JP)
  Receive Date: 20131120
  Receipt Date: 20140530
  Transmission Date: 20141212
  Serious: Yes (Other)
  Sender: FDA-Public Use
  Company Number: PHHY2013JP131975

PATIENT
  Age: 68 Year
  Sex: Male
  Weight: 71 kg

DRUGS (11)
  1. ZOMETA [Suspect]
     Indication: METASTASES TO BONE
     Dosage: 04 MG, PER ADMINISTRATION
     Route: 041
     Dates: start: 20110211, end: 201310
  2. ZOMETA [Suspect]
     Dosage: 04 MG, PER ADMINISTRATION
     Route: 041
     Dates: start: 201311
  3. TAXOTERE [Concomitant]
     Dosage: UNK UKN, UNK
  4. DEXART [Concomitant]
     Dosage: UNK UKN, UNK
  5. PREDONINE [Concomitant]
     Dosage: UNK UKN, UNK
  6. BAYASPIRIN [Concomitant]
     Dosage: UNK UKN, UNK
  7. MYONAL [Concomitant]
     Dosage: UNK UKN, UNK
  8. SELTOUCH [Concomitant]
     Dosage: UNK UKN, UNK
  9. HARNAL [Concomitant]
     Dosage: UNK UKN, UNK
  10. CHLORMADINONE ACETATE [Concomitant]
     Dosage: UNK UKN, UNK
  11. ALFAROL [Concomitant]
     Dosage: UNK UKN, UNK

REACTIONS (1)
  - Osteonecrosis of jaw [Not Recovered/Not Resolved]
